FAERS Safety Report 8921084 (Version 1)
Quarter: 2012Q4

REPORT INFORMATION
  Report Type: Report from Study
  Country: US (occurrence: US)
  Receive Date: 20121121
  Receipt Date: 20121121
  Transmission Date: 20130627
  Serious: Yes (Hospitalization)
  Sender: FDA-Public Use
  Company Number: US-ABBOTT-12P-163-1009042-00

PATIENT
  Sex: Male
  Weight: 61.29 kg

DRUGS (2)
  1. HUMIRA [Suspect]
     Indication: CROHN^S DISEASE
     Route: 058
     Dates: start: 2009, end: 201206
  2. PREDNISONE [Suspect]
     Indication: CROHN^S DISEASE
     Route: 048
     Dates: start: 2009, end: 201207

REACTIONS (5)
  - Crohn^s disease [Unknown]
  - Abdominal adhesions [Recovered/Resolved]
  - Abscess [Recovered/Resolved]
  - Bacterial infection [Recovered/Resolved]
  - Weight decreased [Unknown]
